FAERS Safety Report 4492290-4 (Version None)
Quarter: 2004Q3

REPORT INFORMATION
  Report Type: 
  Country: None (occurrence: None)
  Receive Date: 20040924
  Receipt Date: 20040405
  Transmission Date: 20050211
  Serious: Yes (Other)
  Sender: FDA-Public Use
  Company Number: 2004023271

PATIENT
  Sex: Female
  Weight: 104.3273 kg

DRUGS (4)
  1. NARDIL [Suspect]
     Indication: MAJOR DEPRESSION
     Dosage: 45 MG (15 MG, 3 IN 1 D), ORAL
     Route: 048
     Dates: start: 19860101
  2. CALCIUM CARBONATE (CALCIUM CARBONATE) [Suspect]
     Dosage: ORAL
     Route: 048
     Dates: start: 20031201
  3. ALPRAZOLAM [Concomitant]
  4. LEVOTHYROXINE SODIUM [Concomitant]

REACTIONS (8)
  - ANGINA PECTORIS [None]
  - ASTHENIA [None]
  - DEPRESSION [None]
  - FATIGUE [None]
  - HEADACHE [None]
  - HYPERTENSIVE CRISIS [None]
  - STRESS SYMPTOMS [None]
  - TENSION [None]
